FAERS Safety Report 6590967-8 (Version None)
Quarter: 2010Q1

REPORT INFORMATION
  Report Type: 
  Country: None (occurrence: None)
  Receive Date: 20100212
  Receipt Date: 20100202
  Transmission Date: 20100710
  Serious: Yes (Other)
  Sender: FDA-Public Use
  Company Number: 2010S1000797

PATIENT
  Sex: Female

DRUGS (1)
  1. PHOSPHODA FLAVOR NOT SPECIFIED [Suspect]
     Indication: COLONOSCOPY
     Dosage: 90 ML; PO
     Route: 048

REACTIONS (1)
  - RENAL DISORDER [None]
